FAERS Safety Report 15345224 (Version 2)
Quarter: 2018Q4

REPORT INFORMATION
  Report Type: Spontaneous
  Country: US (occurrence: US)
  Receive Date: 20180903
  Receipt Date: 20181207
  Transmission Date: 20190204
  Serious: Yes (Death, Other)
  Sender: FDA-Public Use
  Company Number: US-JNJFOC-20180829630

PATIENT
  Sex: Male
  Weight: 79.38 kg

DRUGS (1)
  1. DARZALEX [Suspect]
     Active Substance: DARATUMUMAB
     Indication: PLASMA CELL MYELOMA
     Route: 042
     Dates: start: 201706, end: 201803

REACTIONS (6)
  - Respiratory tract infection fungal [Not Recovered/Not Resolved]
  - Immunodeficiency [Not Recovered/Not Resolved]
  - Plasma cell myeloma [Fatal]
  - Lower respiratory tract infection bacterial [Not Recovered/Not Resolved]
  - Scrotal cancer [Not Recovered/Not Resolved]
  - Pneumonia [Not Recovered/Not Resolved]
